FAERS Safety Report 17855968 (Version 1)
Quarter: 2020Q2

REPORT INFORMATION
  Report Type: Spontaneous
  Country: GB (occurrence: GB)
  Receive Date: 20200603
  Receipt Date: 20200603
  Transmission Date: 20200714
  Serious: Yes (Death, Life-Threatening, Hospitalization, Disabling)
  Sender: FDA-Public Use
  Company Number: GB-MYLANLABS-2020M1053586

PATIENT
  Age: 67 Year
  Sex: Male

DRUGS (28)
  1. DOXYCYCLINE. [Interacting]
     Active Substance: DOXYCYCLINE
     Dosage: FREQ: FREQ, UNK
     Route: 048
  2. ASPIRIN                            /00002701/ [Concomitant]
     Active Substance: ASPIRIN
     Dosage: 75 MG, FREQ: QD
     Route: 048
     Dates: start: 20070601
  3. RAMIPRIL. [Concomitant]
     Active Substance: RAMIPRIL
     Indication: BLOOD PRESSURE ABNORMAL
     Dosage: 2.5 MG, FREQ: QD
     Route: 048
  4. ROSIGLITAZONE [Concomitant]
     Active Substance: ROSIGLITAZONE
     Dosage: 2 MG, FREQ: BID
     Route: 048
     Dates: start: 20070601
  5. AMOXICILLIN. [Concomitant]
     Active Substance: AMOXICILLIN
     Dosage: 500 MG, FREQ: TID
     Route: 048
  6. TIOTROPIUM BROMIDE [Concomitant]
     Active Substance: TIOTROPIUM BROMIDE
     Dosage: FREQ: FREQ UNK
     Route: 048
  7. ACOMPLIA [Interacting]
     Active Substance: RIMONABANT
     Indication: WEIGHT DECREASED
     Dosage: 20 MG, FREQ: QD
     Route: 048
  8. CIALIS [Concomitant]
     Active Substance: TADALAFIL
     Dosage: 20 MG, FREQ: PRN
     Route: 048
     Dates: start: 20070601
  9. LISINOPRIL. [Concomitant]
     Active Substance: LISINOPRIL
     Dosage: 20 MG, FREQ: QD
     Route: 048
     Dates: start: 20070601
  10. MICONAZOLE. [Concomitant]
     Active Substance: MICONAZOLE
     Dosage: 24 MG, FREQ: QID
     Route: 050
  11. FORMOTEROL [Concomitant]
     Active Substance: FORMOTEROL
     Dosage: 6 UG, FREQ: QID
     Dates: start: 20070706
  12. PREDNISOLONE. [Concomitant]
     Active Substance: PREDNISOLONE
     Dosage: 5 MG, FREQ: QID
     Route: 048
  13. SALAMOL                            /00139501/ [Concomitant]
     Dosage: 100 UG, FREQ: QID
     Route: 055
     Dates: start: 20070626
  14. GLIPIZIDE. [Concomitant]
     Active Substance: GLIPIZIDE
     Dosage: 5 MG, FREQ: BID
     Route: 048
     Dates: start: 20070601
  15. TIOTROPIUM BROMIDE [Concomitant]
     Active Substance: TIOTROPIUM BROMIDE
     Dosage: 18 UG, FREQ: QD
     Route: 055
     Dates: start: 20070601
  16. LANSOPRAZOLE. [Concomitant]
     Active Substance: LANSOPRAZOLE
     Indication: DYSPEPSIA
     Dosage: 30 MG, FREQ: QD
     Route: 048
     Dates: start: 20070604
  17. ERYTHROMYCIN. [Interacting]
     Active Substance: ERYTHROMYCIN
     Indication: LOWER RESPIRATORY TRACT INFECTION
     Dosage: FREQ: UNK
     Route: 065
  18. DAKTACORT [Concomitant]
     Active Substance: HYDROCORTISONE\MICONAZOLE NITRATE
     Indication: DRY SKIN
     Dosage: 1 DF, FREQ: TID
     Route: 061
  19. DIPROBASE                          /01210201/ [Concomitant]
     Indication: DRY SKIN
     Dosage: 1 DOSAGE FORM, TID
     Route: 061
  20. ALLOPURINOL. [Concomitant]
     Active Substance: ALLOPURINOL
     Indication: GOUT
     Dosage: 300 MG, FREQ: QD
     Route: 048
     Dates: start: 20070604
  21. FUROSEMIDE. [Concomitant]
     Active Substance: FUROSEMIDE
     Dosage: 40 MG, FREQ: BID
     Route: 048
     Dates: start: 20070601
  22. ATORVASTATIN [Concomitant]
     Active Substance: ATORVASTATIN
     Indication: BLOOD CHOLESTEROL ABNORMAL
     Dosage: 40 MG, FREQ: QD
     Route: 048
     Dates: start: 20070601
  23. BUDESONIDE. [Concomitant]
     Active Substance: BUDESONIDE
     Dosage: 100 UG, FREQ: QID
     Route: 055
     Dates: start: 20070706
  24. ERYTHROMYCIN. [Concomitant]
     Active Substance: ERYTHROMYCIN
     Indication: INFECTION
     Dosage: 250 MG, FREQ: QID
     Route: 048
  25. HYDROCHLOROTHIAZIDE. [Concomitant]
     Active Substance: HYDROCHLOROTHIAZIDE
     Dosage: 12.5 MG, FREQ: QD
     Route: 048
     Dates: start: 20070601
  26. DOXYCYCLINE. [Suspect]
     Active Substance: DOXYCYCLINE
     Indication: PRODUCT USED FOR UNKNOWN INDICATION
     Dosage: 100 MG, FREQ:QD
     Route: 048
  27. METFORMIN [Concomitant]
     Active Substance: METFORMIN HYDROCHLORIDE
     Dosage: 500 MG, FREQ: BID
     Route: 048
     Dates: start: 20070601
  28. CHLORHEXIDINE GLUCONATE. [Concomitant]
     Active Substance: CHLORHEXIDINE GLUCONATE
     Dosage: 0.2 %, FREQ: BID
     Route: 048

REACTIONS (12)
  - Hypotension [Not Recovered/Not Resolved]
  - Dyspnoea [Not Recovered/Not Resolved]
  - Diarrhoea [Not Recovered/Not Resolved]
  - Acute kidney injury [Not Recovered/Not Resolved]
  - Stevens-Johnson syndrome [Not Recovered/Not Resolved]
  - Pyrexia [Not Recovered/Not Resolved]
  - Eosinophilia [Unknown]
  - Confusional state [Unknown]
  - Toxic shock syndrome [Not Recovered/Not Resolved]
  - Pneumonia fungal [Fatal]
  - Drug interaction [Not Recovered/Not Resolved]
  - Anaemia [Not Recovered/Not Resolved]

NARRATIVE: CASE EVENT DATE: 20071001
